FAERS Safety Report 8475039-X (Version None)
Quarter: 2012Q2

REPORT INFORMATION
  Report Type: 
  Country: None (occurrence: None)
  Receive Date: 20120628
  Receipt Date: 20120618
  Transmission Date: 20120825
  Serious: No
  Sender: FDA-Public Use
  Company Number: SE-JNJFOC-20120608746

PATIENT
  Age: 55 Year
  Sex: Male

DRUGS (3)
  1. IMOVANE [Concomitant]
     Route: 065
  2. BENZODIAZEPINES NOS [Concomitant]
     Route: 065
  3. DURAGESIC-100 [Suspect]
     Indication: PAIN
     Route: 062

REACTIONS (1)
  - INAPPROPRIATE SCHEDULE OF DRUG ADMINISTRATION [None]
